FAERS Safety Report 10752529 (Version 1)
Quarter: 2015Q1

REPORT INFORMATION
  Report Type: Report from Study
  Country: BR (occurrence: BR)
  Receive Date: 20150130
  Receipt Date: 20150130
  Transmission Date: 20150721
  Serious: Yes (Death, Hospitalization, Other)
  Sender: FDA-Public Use
  Company Number: PHHY2015BR010321

PATIENT
  Age: 85 Year
  Sex: Male
  Weight: 69 kg

DRUGS (6)
  1. OSTEONUTRI [Concomitant]
     Indication: OSTEOPOROSIS PROPHYLAXIS
     Dosage: 1 DF, AT NIGHT, 4 YEARS AGO APPROXIMATELY
     Route: 065
  2. MERITOR [Concomitant]
     Active Substance: GLIMEPIRIDE\METFORMIN
     Indication: DIABETES MELLITUS
     Dosage: 1 DF, QD, 5 YEARS AGO APPROXIMATELY
     Route: 065
  3. EXELON [Suspect]
     Active Substance: RIVASTIGMINE TARTRATE
     Indication: DEMENTIA ALZHEIMER^S TYPE
     Dosage: 1 DF, (4.6MG IN THE MORNING AND AT NIGHT)
     Route: 065
  4. TRADJENTA [Concomitant]
     Active Substance: LINAGLIPTIN
     Indication: DIABETES MELLITUS
     Dosage: 1 DF, QD, 5 YEARS AGO APPROXIMATELY
     Route: 065
  5. METFORMIN [Concomitant]
     Active Substance: METFORMIN HYDROCHLORIDE
     Indication: DIABETES MELLITUS
     Dosage: 1 DF, QD, 5 YEARS AGO APPROXIMATELY
     Route: 065
  6. BICARBONATE [Concomitant]
     Active Substance: BICARBONATE ION
     Indication: CALCIUM DEFICIENCY
     Dosage: 1 DF, WEEKLY, 5 YEARS AGO APPROXIMATELY
     Route: 065

REACTIONS (1)
  - Cerebrovascular accident [Fatal]

NARRATIVE: CASE EVENT DATE: 20141223
